FAERS Safety Report 6571145-5 (Version None)
Quarter: 2010Q1

REPORT INFORMATION
  Report Type: 
  Country: None (occurrence: None)
  Receive Date: 20100204
  Receipt Date: 20091203
  Transmission Date: 20100710
  Serious: Yes (Hospitalization, Other)
  Sender: FDA-Public Use
  Company Number: PHHY2008GB16817

PATIENT
  Sex: Male

DRUGS (3)
  1. SYNTOMETRINE [Suspect]
     Dosage: 1 DF, ONCE/SINGLE
     Dates: start: 20080510, end: 20080510
  2. MALARONE [Suspect]
     Dosage: UNK
     Dates: start: 20070826, end: 20070915
  3. YELLOW FEVER VACCINE [Suspect]
     Dosage: UNK
     Dates: start: 20070806, end: 20070806

REACTIONS (7)
  - BACTERIAL SEPSIS [None]
  - CHEST X-RAY ABNORMAL [None]
  - HAEMANGIOMA [None]
  - LUNG CONSOLIDATION [None]
  - PNEUMOTHORAX [None]
  - RESPIRATORY DISTRESS [None]
  - SEPSIS [None]
